FAERS Safety Report 5816060-7 (Version None)
Quarter: 2008Q3

REPORT INFORMATION
  Report Type: 
  Country: None (occurrence: None)
  Receive Date: 20080721
  Receipt Date: 20080711
  Transmission Date: 20090109
  Serious: Yes (Other)
  Sender: FDA-Public Use
  Company Number: PHHO2008GB04149

PATIENT
  Sex: Female
  Weight: 44.4 kg

DRUGS (8)
  1. TYZEKA [Suspect]
     Indication: HEPATITIS B VIRUS TEST
     Dosage: 600 MG, QD
     Route: 048
     Dates: start: 20070831, end: 20071130
  2. COMPARATOR PEGASYS [Suspect]
     Indication: HEPATITIS B VIRUS TEST
     Dosage: 180 MCG WEEKLY
     Route: 058
     Dates: start: 20070831, end: 20071130
  3. AUGMENTIN '125' [Concomitant]
  4. CHLORAMPHENICOL [Concomitant]
  5. SENNA [Concomitant]
     Dosage: UNK
  6. FYBOGEL [Concomitant]
  7. BISACODYL [Concomitant]
  8. FERROUS SULFATE TAB [Concomitant]

REACTIONS (7)
  - BURNING SENSATION [None]
  - HYPOAESTHESIA [None]
  - MUSCLE SPASMS [None]
  - NEUROPATHY PERIPHERAL [None]
  - PAIN [None]
  - PARAESTHESIA [None]
  - VIBRATION TEST ABNORMAL [None]
